FAERS Safety Report 5706488-8 (Version None)
Quarter: 2008Q2

REPORT INFORMATION
  Report Type: 
  Country: None (occurrence: None)
  Receive Date: 20080414
  Receipt Date: 20080331
  Transmission Date: 20081010
  Serious: Yes (Other)
  Sender: FDA-Public Use
  Company Number: 2008-US-000294

PATIENT
  Age: 9 Year
  Sex: Female
  Weight: 15.4 kg

DRUGS (1)
  1. INCRELEX [Suspect]
     Indication: GROWTH HORMONE DEFICIENCY
     Dosage: 1.5 MG, BID
     Dates: start: 20060721, end: 20080312

REACTIONS (2)
  - AUTOSOMAL CHROMOSOME ANOMALY [None]
  - MYELODYSPLASTIC SYNDROME [None]
